FAERS Safety Report 8840798 (Version 1)
Quarter: 2012Q4

REPORT INFORMATION
  Report Type: 
  Country: US (occurrence: US)
  Receive Date: 20121015
  Receipt Date: 20121015
  Transmission Date: 20130627
  Serious: No
  Sender: FDA-Public Use
  Company Number: US-BAYER-2012-104864

PATIENT
  Age: 78 Year
  Sex: Female
  Weight: 66 kg

DRUGS (7)
  1. ALEVE CAPLET/TABLET,MIDOL EXTENDED RELIEF CAPLET [Suspect]
     Indication: ARTHRITIS
     Dosage: 2 DF, PRN
     Route: 048
     Dates: start: 201207
  2. ALEVE CAPLET/TABLET,MIDOL EXTENDED RELIEF CAPLET [Suspect]
     Indication: ARTHRITIS
     Dosage: 4 DF, UNK
     Route: 048
     Dates: start: 20121001, end: 20121001
  3. POTASSIUM [Concomitant]
  4. CHLORTHALIDONE [Concomitant]
  5. LISINOPRIL [Concomitant]
  6. PRIMIDONE [Concomitant]
  7. POTASSIUM CHLORIDE [Concomitant]

REACTIONS (1)
  - No adverse event [None]
